FAERS Safety Report 8381141-3 (Version None)
Quarter: 2012Q2

REPORT INFORMATION
  Report Type: 
  Country: None (occurrence: None)
  Receive Date: 20120523
  Receipt Date: 20120518
  Transmission Date: 20120825
  Serious: Yes (Other)
  Sender: FDA-Public Use
  Company Number: PHHY2012BR043331

PATIENT
  Age: 67 Year
  Sex: Male
  Weight: 90 kg

DRUGS (6)
  1. INDAPAMIDE [Concomitant]
     Dosage: 1 TABLET (1.5 MG) A DAY
     Route: 048
  2. SIMVASTATIN [Concomitant]
     Indication: BLOOD CHOLESTEROL INCREASED
     Dosage: 1 TABLET (20 MG) A DAY
     Route: 048
  3. DIOVAN HCT [Suspect]
     Dosage: 1 TABLET (160/12.5 MG) A DAY
     Route: 048
  4. ALLOPURINOL [Concomitant]
     Indication: BLOOD URIC ACID
     Dosage: 1 TABLET A DAY
     Route: 048
  5. EXFORGE [Suspect]
     Indication: HYPERTENSION
     Dosage: 1 TABLET (320/5 MG) A DAY
     Route: 048
  6. DIOVAN HCT [Suspect]
     Indication: HYPERTENSION
     Dosage: 1 TABLET (80/12.5 MG) A DAY
     Route: 048

REACTIONS (4)
  - SUPERFICIAL INJURY OF EYE [None]
  - EYE SWELLING [None]
  - FALL [None]
  - BLOOD URIC ACID ABNORMAL [None]
